FAERS Safety Report 12376604 (Version 2)
Quarter: 2016Q2

REPORT INFORMATION
  Report Type: Report from Study
  Country: US (occurrence: US)
  Receive Date: 20160517
  Receipt Date: 20160517
  Transmission Date: 20160815
  Serious: No
  Sender: FDA-Public Use
  Company Number: US-MALLINCKRODT-T201502613

PATIENT
  Age: 46 Year
  Sex: Female

DRUGS (1)
  1. REPOSITORY CORTICOTROPIN INJECTION [Suspect]
     Active Substance: CORTICOTROPIN
     Indication: RHEUMATOID ARTHRITIS
     Dosage: 80 UNITS TWICE A WEEK
     Route: 058
     Dates: start: 20150511

REACTIONS (9)
  - Injection site erythema [Unknown]
  - Burning sensation [Unknown]
  - Headache [Unknown]
  - Drug effect decreased [Unknown]
  - Joint swelling [Unknown]
  - Injection site swelling [Unknown]
  - Malaise [Unknown]
  - Swelling face [Unknown]
  - Swelling [Unknown]

NARRATIVE: CASE EVENT DATE: 201505
